FAERS Safety Report 10930136 (Version 1)
Quarter: 2015Q1

REPORT INFORMATION
  Report Type: Spontaneous
  Country: US (occurrence: None)
  Receive Date: 20150317
  Receipt Date: 20150317
  Transmission Date: 20150721
  Serious: Yes (Life-Threatening, Hospitalization, Other)
  Sender: FDA-Public Use
  Company Number: US2015GSK032274

PATIENT
  Age: 55 Year
  Sex: Male
  Weight: 74.8 kg

DRUGS (9)
  1. SEREVENT (SALMETEROL XINAFOATE) INHALER, 50 UG [Concomitant]
  2. SINGULAIR [Concomitant]
     Active Substance: MONTELUKAST SODIUM
  3. QVAR (BECLOMETHASONE DIPROPIONATE) INHALER [Concomitant]
  4. VALTREX (VALACICLOVIR HYDROCHLORIDE) UNKNOWN [Concomitant]
  5. PROVENTIL (SALBUTAMOL SULPHATE) INHALER [Concomitant]
  6. ENALAPRIL (ENALAPRIL) [Concomitant]
     Active Substance: ENALAPRIL
  7. VITAMIN D (VITAMIN D NOS) [Concomitant]
  8. ASPIRIN (ACETYLSALICYLIC ACID) [Concomitant]
     Active Substance: ASPIRIN
  9. TRIUMEQ [Suspect]
     Active Substance: ABACAVIR SULFATE\DOLUTEGRAVIR SODIUM\LAMIVUDINE
     Indication: HIV INFECTION
     Route: 048
     Dates: start: 20150226, end: 20150306

REACTIONS (17)
  - Laceration [None]
  - Malaise [None]
  - Fall [None]
  - Subdural haematoma [None]
  - Skull fracture [None]
  - Pyrexia [None]
  - Cerebral haemorrhage [None]
  - Craniocerebral injury [None]
  - Bone contusion [None]
  - Asthma [None]
  - Arthralgia [None]
  - Musculoskeletal disorder [None]
  - Brain contusion [None]
  - Myalgia [None]
  - Headache [None]
  - Mental status changes [None]
  - Rhinorrhoea [None]

NARRATIVE: CASE EVENT DATE: 20150306
